FAERS Safety Report 21979216 (Version 1)
Quarter: 2023Q1

REPORT INFORMATION
  Report Type: Spontaneous
  Country: JP (occurrence: JP)
  Receive Date: 20230210
  Receipt Date: 20230210
  Transmission Date: 20230418
  Serious: Yes (Other)
  Sender: FDA-Public Use
  Company Number: JP-IPSEN Group, Research and Development-2023-02294

PATIENT
  Age: 66 Year
  Sex: Male

DRUGS (2)
  1. IRINOTECAN [Suspect]
     Active Substance: IRINOTECAN
     Indication: Pancreatic carcinoma stage IV
     Route: 065
  2. FLUOROURACIL\LEUCOVORIN CALCIUM [Suspect]
     Active Substance: FLUOROURACIL\LEUCOVORIN CALCIUM
     Indication: Pancreatic carcinoma stage IV

REACTIONS (2)
  - Haemobilia [Recovered/Resolved]
  - Shock haemorrhagic [Unknown]
